FAERS Safety Report 8889867 (Version 1)
Quarter: 2012Q4

REPORT INFORMATION
  Report Type: Spontaneous
  Country: US (occurrence: None)
  Receive Date: 20121105
  Receipt Date: 20121105
  Transmission Date: 20130627
  Serious: Yes (Death, Life-Threatening, Disabling, Other)
  Sender: FDA-Public Use
  Company Number: None

PATIENT
  Age: 38 Year
  Sex: Male
  Weight: 84.82 kg

DRUGS (1)
  1. ZYVOX [Suspect]
     Indication: CELLULITIS
     Dosage: 1   12 hrs
     Dates: start: 20121009, end: 20121009

REACTIONS (1)
  - Circulatory collapse [None]
